FAERS Safety Report 9427026 (Version 1)
Quarter: 2013Q3

REPORT INFORMATION
  Report Type: Report from Study
  Country: US (occurrence: US)
  Receive Date: 20130730
  Receipt Date: 20130730
  Transmission Date: 20140515
  Serious: No
  Sender: FDA-Public Use
  Company Number: US-ABBOTT-12P-163-0995277-00

PATIENT
  Age: 77 Year
  Sex: Male

DRUGS (4)
  1. NIASPAN (COATED) [Suspect]
     Indication: BLOOD CHOLESTEROL INCREASED
     Dosage: TAKES BETWEEN 11PM AND 12 MIDNIGHT
     Dates: start: 20121003
  2. LOSARTAN [Concomitant]
     Indication: HYPERTENSION
  3. LIPITOR [Concomitant]
     Indication: BLOOD CHOLESTEROL INCREASED
  4. TIKOSYN [Concomitant]
     Indication: HEART RATE IRREGULAR

REACTIONS (4)
  - Sinus congestion [Not Recovered/Not Resolved]
  - Sneezing [Not Recovered/Not Resolved]
  - Dizziness [Not Recovered/Not Resolved]
  - Somnolence [Not Recovered/Not Resolved]
